FAERS Safety Report 11516661 (Version 1)
Quarter: 2015Q3

REPORT INFORMATION
  Report Type: Spontaneous
  Country: IT (occurrence: IT)
  Receive Date: 20150917
  Receipt Date: 20150917
  Transmission Date: 20151125
  Serious: Yes (Other)
  Sender: FDA-Public Use
  Company Number: IT-CELGENE-ITA-2015081950

PATIENT
  Age: 63 Year
  Sex: Female

DRUGS (3)
  1. AZACITIDINE. [Suspect]
     Active Substance: AZACITIDINE
     Indication: MYELODYSPLASTIC SYNDROME
     Route: 065
     Dates: start: 200707, end: 201103
  2. AZACITIDINE. [Suspect]
     Active Substance: AZACITIDINE
     Indication: ACUTE MYELOID LEUKAEMIA
     Route: 065
     Dates: start: 201109, end: 201412
  3. RED BLOOD CELLS [Concomitant]
     Active Substance: HUMAN RED BLOOD CELL
     Indication: CYTOPENIA
     Route: 041

REACTIONS (9)
  - Diverticulitis [Unknown]
  - Anal fistula [Unknown]
  - Pneumonitis [Unknown]
  - Acute myeloid leukaemia [Unknown]
  - Blood product transfusion dependent [Unknown]
  - No therapeutic response [Unknown]
  - Treatment noncompliance [Unknown]
  - Pancytopenia [Unknown]
  - Ventricular arrhythmia [Unknown]

NARRATIVE: CASE EVENT DATE: 201107
